FAERS Safety Report 7516890-X (Version None)
Quarter: 2011Q2

REPORT INFORMATION
  Report Type: 
  Country: None (occurrence: None)
  Receive Date: 20110601
  Receipt Date: 20101220
  Transmission Date: 20111010
  Serious: Yes (Hospitalization)
  Sender: FDA-Public Use
  Company Number: US-BAYER-201029563NA

PATIENT
  Age: 28 Year
  Sex: Female
  Weight: 61.224 kg

DRUGS (16)
  1. YASMIN [Suspect]
     Indication: PRODUCT USED FOR UNKNOWN INDICATION
     Route: 048
  2. NAPROXEN (ALEVE) [Concomitant]
  3. ADVIL LIQUI-GELS [Concomitant]
  4. HYDROCODONE BITARTRATE AND ACETAMINOPHEN [Concomitant]
     Dosage: UNK
     Dates: start: 20090501
  5. FLUCONAZOLE [Concomitant]
     Dosage: UNK
     Dates: end: 20090806
  6. YAZ [Suspect]
     Indication: PRODUCT USED FOR UNKNOWN INDICATION
     Dosage: UNK
     Route: 048
     Dates: start: 20080101, end: 20090801
  7. XANAX [Concomitant]
     Dosage: UNK UNK, TID
     Dates: start: 20080101
  8. PHENERGAN HCL [Concomitant]
     Indication: NAUSEA
     Dosage: UNK
     Dates: start: 20090801
  9. DARVOCET [Concomitant]
     Indication: PAIN
     Dosage: UNK
     Dates: start: 20090101, end: 20090801
  10. IBUPROFEN [Concomitant]
  11. TRAMADOL HCL [Concomitant]
     Dosage: 50 MG, UNK
     Dates: start: 20090729
  12. ALPRAZOLAM [Concomitant]
     Dosage: 0.5 MG, UNK
     Dates: start: 20090501
  13. ANTI-ASTHMATICS [Concomitant]
     Dosage: UNK
     Dates: start: 20090801
  14. LORTAB [Concomitant]
     Indication: PAIN
     Dosage: UNK UNK, QID
     Dates: start: 20090501
  15. TRI-SPRINTEC [Concomitant]
     Dosage: UNK
     Dates: start: 20090713
  16. PROGESTERONE [Concomitant]
     Dosage: UNK UNK, CONT
     Dates: start: 20090221

REACTIONS (9)
  - CHEST PAIN [None]
  - PREGNANCY [None]
  - HEADACHE [None]
  - DIZZINESS [None]
  - PAIN [None]
  - GALLBLADDER NON-FUNCTIONING [None]
  - DYSPNOEA [None]
  - URINARY TRACT DISORDER [None]
  - CHOLELITHIASIS [None]
